FAERS Safety Report 11374765 (Version 2)
Quarter: 2015Q3

REPORT INFORMATION
  Report Type: Spontaneous
  Country: FI (occurrence: FI)
  Receive Date: 20150813
  Receipt Date: 20150814
  Transmission Date: 20151125
  Serious: Yes (Other)
  Sender: FDA-Public Use
  Company Number: FI-ACCORD-033031

PATIENT
  Sex: Female

DRUGS (5)
  1. LEVETIRACETAM. [Suspect]
     Active Substance: LEVETIRACETAM
     Indication: EPILEPSY
  2. TRAMADOL. [Concomitant]
     Active Substance: TRAMADOL
     Indication: PAIN
  3. LEVOTHYROXINE. [Suspect]
     Active Substance: LEVOTHYROXINE
     Indication: HYPOTHYROIDISM
     Dosage: STARTED AT DOSE 0.2 MG/DAY, THEN NCREASED TO 0.4 MG PER DAY, THEN STOPPED FOR 7 DAYS AND
  4. PREGABALIN. [Concomitant]
     Active Substance: PREGABALIN
     Dosage: STABLE DOSE
  5. ETORICOXIB [Concomitant]
     Active Substance: ETORICOXIB
     Dosage: STABLE DOSE

REACTIONS (1)
  - Hyperthyroidism [Recovered/Resolved]
